FAERS Safety Report 8675554 (Version 2)
Quarter: 2012Q4

REPORT INFORMATION
  Report Type: 
  Country: CO (occurrence: CO)
  Receive Date: 20120720
  Receipt Date: 20121026
  Transmission Date: 20130627
  Serious: Yes (Hospitalization)
  Sender: FDA-Public Use
  Company Number: CO-ELI_LILLY_AND_COMPANY-CO201207004125

PATIENT
  Age: 60 Year
  Sex: Female

DRUGS (4)
  1. HUMALOG 25% LISPRO, 75% NPL [Suspect]
     Indication: TYPE 2 DIABETES MELLITUS
     Dosage: 25 u, tid
     Route: 058
     Dates: start: 201204, end: 20120523
  2. HUMALOG 25% LISPRO, 75% NPL [Suspect]
     Dosage: UNK, unknown
     Dates: start: 20120711, end: 20120916
  3. METFORMIN [Concomitant]
  4. ENALAPRIL [Concomitant]

REACTIONS (2)
  - Haematuria [Recovered/Resolved]
  - Renal tuberculosis [Unknown]
